FAERS Safety Report 8968972 (Version 1)
Quarter: 2012Q4

REPORT INFORMATION
  Report Type: 
  Country: US (occurrence: US)
  Receive Date: 20121218
  Receipt Date: 20121218
  Transmission Date: 20130627
  Serious: No
  Sender: FDA-Public Use
  Company Number: US-BRISTOL-MYERS SQUIBB COMPANY-16329831

PATIENT
  Sex: Male

DRUGS (1)
  1. ABILIFY [Suspect]

REACTIONS (15)
  - Muscular weakness [Unknown]
  - Muscle spasms [Unknown]
  - Hepatic enzyme increased [Unknown]
  - Infection [Unknown]
  - Balance disorder [Unknown]
  - Clumsiness [Unknown]
  - Constipation [Unknown]
  - Eating disorder [Unknown]
  - Retching [Unknown]
  - Dysphagia [Unknown]
  - Nightmare [Unknown]
  - Dizziness postural [Unknown]
  - Tremor [Unknown]
  - Weight increased [Unknown]
  - Impaired healing [Unknown]
